FAERS Safety Report 15627434 (Version 4)
Quarter: 2019Q4

REPORT INFORMATION
  Report Type: Spontaneous
  Country: US (occurrence: US)
  Receive Date: 20181116
  Receipt Date: 20191118
  Transmission Date: 20200122
  Serious: Yes (Hospitalization)
  Sender: FDA-Public Use
  Company Number: US-MYLANLABS-2018M1086341

PATIENT

DRUGS (1)
  1. NADOLOL TABLETS, USP [Suspect]
     Active Substance: NADOLOL
     Indication: BLOOD PRESSURE ABNORMAL
     Dosage: 20 MG, UNK

REACTIONS (7)
  - Chest pain [Unknown]
  - Malaise [Unknown]
  - Throat tightness [Unknown]
  - Drug ineffective [Unknown]
  - Treatment noncompliance [Unknown]
  - Adverse event [Unknown]
  - Swelling [Unknown]
